FAERS Safety Report 7180100-6 (Version None)
Quarter: 2010Q4

REPORT INFORMATION
  Report Type: 
  Country: None (occurrence: None)
  Receive Date: 20101221
  Receipt Date: 20101209
  Transmission Date: 20110411
  Serious: Yes (Other)
  Sender: FDA-Public Use
  Company Number: GXKR2010ES14017

PATIENT
  Age: 66 Year
  Sex: Female

DRUGS (6)
  1. FLUOROURACILO FERRER FARMA (NGX) [Suspect]
     Indication: COLORECTAL CANCER METASTATIC
     Dosage: UNK
     Route: 042
     Dates: start: 20100510
  2. BEVACIZUMAB [Suspect]
  3. IRINOTECAN HYDROCHLORIDE [Suspect]
     Indication: COLORECTAL CANCER METASTATIC
     Dosage: UNK
     Route: 042
     Dates: start: 20100510
  4. FOLINIC ACID [Suspect]
     Indication: COLORECTAL CANCER METASTATIC
     Dosage: UNK
     Route: 042
     Dates: start: 20100510
  5. DEXAMETHASONE [Suspect]
     Dosage: UNK
     Route: 042
     Dates: start: 20100510
  6. ONDANSETRON [Suspect]
     Dosage: 5 AMPOLLAS DE 2 ML
     Route: 042
     Dates: start: 20100510

REACTIONS (1)
  - DYSTONIA [None]
